FAERS Safety Report 5632005-7 (Version None)
Quarter: 2008Q1

REPORT INFORMATION
  Report Type: 
  Country: None (occurrence: None)
  Receive Date: 20080213
  Receipt Date: 20080128
  Transmission Date: 20080703
  Serious: Yes (Other)
  Sender: FDA-Public Use
  Company Number: PAR_02086_2008

PATIENT
  Age: 36 Year
  Sex: Female

DRUGS (9)
  1. IBUPROFEN [Suspect]
     Indication: DRUG USE FOR UNKNOWN INDICATION
     Dosage: 2800 MG 1X
     Dates: start: 20011011
  2. SEROXAT /00830801/ (SEROXAT - PAROXETINE) (NOT SPECIFIED) [Suspect]
     Indication: DRUG USE FOR UNKNOWN INDICATION
     Dosage: 180-210 MG 1X, 30 MG QD, 10 MG 1X/5 DAYS, DF
     Dates: start: 20001010, end: 20001110
  3. SEROXAT /00830801/ (SEROXAT - PAROXETINE) (NOT SPECIFIED) [Suspect]
     Indication: DRUG USE FOR UNKNOWN INDICATION
     Dosage: 180-210 MG 1X, 30 MG QD, 10 MG 1X/5 DAYS, DF
     Dates: start: 20011011, end: 20011011
  4. SEROXAT /00830801/ (SEROXAT - PAROXETINE) (NOT SPECIFIED) [Suspect]
     Indication: DRUG USE FOR UNKNOWN INDICATION
     Dosage: 180-210 MG 1X, 30 MG QD, 10 MG 1X/5 DAYS, DF
     Dates: start: 20010101
  5. SEROXAT /00830801/ (SEROXAT - PAROXETINE) (NOT SPECIFIED) [Suspect]
     Indication: DRUG USE FOR UNKNOWN INDICATION
     Dosage: 180-210 MG 1X, 30 MG QD, 10 MG 1X/5 DAYS, DF
     Dates: start: 20010101
  6. ACETAMINOPHEN [Suspect]
     Indication: DRUG USE FOR UNKNOWN INDICATION
     Dosage: ^POSSIBLY A HANDFUL^
     Dates: start: 20011011
  7. ALCOHOL /00002101/ (ALCOHOL) [Suspect]
     Indication: DRUG USE FOR UNKNOWN INDICATION
     Dosage: 10 IU 1X, DF
     Dates: start: 20011011, end: 20011011
  8. FLUOXETINE [Concomitant]
  9. CHLORDIAZEPOXIDE [Concomitant]

REACTIONS (20)
  - ABASIA [None]
  - ABNORMAL BEHAVIOUR [None]
  - ACCIDENT [None]
  - ANXIETY [None]
  - ASTHENIA [None]
  - CONDITION AGGRAVATED [None]
  - CONFUSIONAL STATE [None]
  - DISINHIBITION [None]
  - DISTURBANCE IN ATTENTION [None]
  - DRUG WITHDRAWAL SYNDROME [None]
  - FEAR [None]
  - FEELING ABNORMAL [None]
  - MULTIPLE DRUG OVERDOSE [None]
  - PANIC ATTACK [None]
  - PARAESTHESIA [None]
  - PARANOIA [None]
  - RESTLESSNESS [None]
  - SUICIDE ATTEMPT [None]
  - SYNCOPE [None]
  - TEARFULNESS [None]
